FAERS Safety Report 6766911-7 (Version None)
Quarter: 2010Q2

REPORT INFORMATION
  Report Type: 
  Country: None (occurrence: None)
  Receive Date: 20100611
  Receipt Date: 20100604
  Transmission Date: 20101027
  Serious: Yes (Hospitalization)
  Sender: FDA-Public Use
  Company Number: IE-B.I. PHARMACEUTICALS,INC./RIDGEFIELD-2010-UK-00449UK

PATIENT
  Age: 57 Year
  Sex: Male

DRUGS (2)
  1. MICARDIS [Suspect]
     Indication: HYPERTENSION
     Route: 048
  2. NU-SEALS [Concomitant]
     Dosage: 75 MG
     Route: 048

REACTIONS (4)
  - DYSPNOEA [None]
  - IRRITABILITY [None]
  - PALPITATIONS [None]
  - RASH [None]
